FAERS Safety Report 19678085 (Version 1)
Quarter: 2021Q3

REPORT INFORMATION
  Report Type: Report from Study
  Country: US (occurrence: US)
  Receive Date: 20210809
  Receipt Date: 20210809
  Transmission Date: 20211014
  Serious: Yes (Death, Hospitalization)
  Sender: FDA-Public Use
  Company Number: US-INSMED, INC.-US-INS-20-01590

PATIENT
  Age: 70 Year
  Sex: Female

DRUGS (4)
  1. ARIKAYCE [Suspect]
     Active Substance: AMIKACIN
     Dosage: 590 MILLIGRAM, BIW
     Route: 055
     Dates: end: 2021
  2. ARIKAYCE [Suspect]
     Active Substance: AMIKACIN
     Dosage: 590 MILLIGRAM, THREE TIMES A WEEK ON MONDAY,WEDNESDAY, AND FRIDAY
     Route: 055
  3. ARIKAYCE [Suspect]
     Active Substance: AMIKACIN
     Dosage: 590 MILLIGRAM, EVERY OTHER DAY
     Route: 055
     Dates: start: 202011
  4. ARIKAYCE [Suspect]
     Active Substance: AMIKACIN
     Indication: PRODUCT USED FOR UNKNOWN INDICATION
     Dosage: 590 MILLIGRAM, ONCE DAILY
     Route: 055
     Dates: start: 202008, end: 20201008

REACTIONS (8)
  - Off label use [Unknown]
  - Abdominal operation [Unknown]
  - Therapy interrupted [Unknown]
  - Cough [Unknown]
  - Bronchospasm [Unknown]
  - Death [Fatal]
  - Wheezing [Unknown]
  - Dysphonia [Unknown]

NARRATIVE: CASE EVENT DATE: 2020
